FAERS Safety Report 6683571-4 (Version None)
Quarter: 2010Q2

REPORT INFORMATION
  Report Type: 
  Country: None (occurrence: None)
  Receive Date: 20100413
  Receipt Date: 20100406
  Transmission Date: 20101027
  Serious: Yes (Life-Threatening, Hospitalization)
  Sender: FDA-Public Use
  Company Number: 2010SP019902

PATIENT
  Age: 49 Year
  Sex: Female
  Weight: 76 kg

DRUGS (1)
  1. CLARITIN-D [Suspect]
     Dosage: 1 DF;ONCE ;PO
     Route: 048

REACTIONS (9)
  - CHILLS [None]
  - CONVULSION [None]
  - ERYTHEMA [None]
  - HYPERSENSITIVITY [None]
  - PAIN [None]
  - SKIN EXFOLIATION [None]
  - SKIN OEDEMA [None]
  - SKIN WARM [None]
  - URTICARIA [None]
